FAERS Safety Report 6153695-9 (Version None)
Quarter: 2009Q2

REPORT INFORMATION
  Report Type: 
  Country: None (occurrence: None)
  Receive Date: 20090409
  Receipt Date: 20081017
  Transmission Date: 20091009
  Serious: No
  Sender: FDA-Public Use
  Company Number: 003#1#2008-00174

PATIENT

DRUGS (1)
  1. LACOSAMIDE [Suspect]
     Indication: UNEVALUABLE EVENT
     Dosage: (UP TO 600MG)

REACTIONS (4)
  - ABNORMAL BEHAVIOUR [None]
  - MENTAL DISORDER [None]
  - SOMNOLENCE [None]
  - SUICIDAL BEHAVIOUR [None]
